FAERS Safety Report 14985858 (Version 1)
Quarter: 2018Q2

REPORT INFORMATION
  Report Type: Spontaneous
  Country: US (occurrence: US)
  Receive Date: 20180516
  Receipt Date: 20180516
  Transmission Date: 20180711
  Serious: Yes (Hospitalization)
  Sender: FDA-Public Use
  Company Number: None

PATIENT
  Age: 75 Year
  Sex: Female
  Weight: 109.3 kg

DRUGS (1)
  1. 5-FLUOROURACIL (5-FU) [Suspect]
     Active Substance: FLUOROURACIL
     Dates: end: 20180109

REACTIONS (7)
  - Dyspnoea [None]
  - Asthenia [None]
  - Atrial fibrillation [None]
  - Heart rate increased [None]
  - Mitral valve incompetence [None]
  - Fatigue [None]
  - Cardiac failure congestive [None]

NARRATIVE: CASE EVENT DATE: 20180110
